FAERS Safety Report 23905905 (Version 2)
Quarter: 2024Q2

REPORT INFORMATION
  Report Type: Report from Study
  Country: UY (occurrence: UY)
  Receive Date: 20240527
  Receipt Date: 20240630
  Transmission Date: 20240716
  Serious: Yes (Death, Hospitalization, Other)
  Sender: FDA-Public Use
  Company Number: UY-ABBVIE-5774564

PATIENT
  Age: 88 Year
  Sex: Female

DRUGS (1)
  1. HUMIRA [Suspect]
     Active Substance: ADALIMUMAB
     Indication: Rheumatoid arthritis
     Dosage: FORM STRENGTH: 40 MILLIGRAM
     Route: 058
     Dates: start: 20150611

REACTIONS (4)
  - Death [Fatal]
  - Limb injury [Unknown]
  - Skin discolouration [Not Recovered/Not Resolved]
  - Peripheral artery occlusion [Not Recovered/Not Resolved]

NARRATIVE: CASE EVENT DATE: 20240501
